FAERS Safety Report 5650275-6 (Version None)
Quarter: 2008Q1

REPORT INFORMATION
  Report Type: 
  Country: None (occurrence: None)
  Receive Date: 20080131
  Receipt Date: 20071217
  Transmission Date: 20080703
  Serious: No
  Sender: FDA-Public Use
  Company Number: US200712003558

PATIENT
  Age: 57 Year
  Sex: Female
  Weight: 103.9 kg

DRUGS (10)
  1. BYETTA [Suspect]
     Indication: TYPE 2 DIABETES MELLITUS
     Dosage: 5 UG, 2/D, SUBCUTANEOUS ;10 UG, 2/D, SUBCUTANEOUS
     Route: 058
     Dates: start: 20071101, end: 20071201
  2. BYETTA [Suspect]
     Indication: TYPE 2 DIABETES MELLITUS
     Dosage: 5 UG, 2/D, SUBCUTANEOUS ;10 UG, 2/D, SUBCUTANEOUS
     Route: 058
     Dates: start: 20071201
  3. GLUCOPHAGE [Concomitant]
  4. COZAAR [Concomitant]
  5. NORVASC [Concomitant]
  6. MOBIC [Concomitant]
  7. LIPITOR [Concomitant]
  8. ACETYLSALICYLIC ACID SRT [Concomitant]
  9. VITAMINS NOS (VITAMINS NOS) [Concomitant]
  10. OMEGA 3 (FISH OIL) [Concomitant]

REACTIONS (4)
  - CARDIAC MURMUR [None]
  - DECREASED APPETITE [None]
  - NASOPHARYNGITIS [None]
  - WEIGHT DECREASED [None]
